FAERS Safety Report 7486377-1 (Version None)
Quarter: 2011Q2

REPORT INFORMATION
  Report Type: 
  Country: None (occurrence: None)
  Receive Date: 20110517
  Receipt Date: 20110509
  Transmission Date: 20111010
  Serious: Yes (Hospitalization)
  Sender: FDA-Public Use
  Company Number: NL-MEDIMMUNE-MEDI-0012149

PATIENT
  Sex: Male
  Weight: 6.7 kg

DRUGS (5)
  1. SYNAGIS [Suspect]
     Route: 030
     Dates: start: 20101011, end: 20110103
  2. BUDESONIDE [Concomitant]
     Indication: BRONCHOPULMONARY DYSPLASIA
     Route: 055
     Dates: start: 20100901
  3. TRIAMTEREEN HYDROCHLOROTHIAZIDE [Concomitant]
     Indication: BRONCHOPULMONARY DYSPLASIA
     Route: 048
     Dates: start: 20091201
  4. ALBUTEROL [Concomitant]
     Indication: BRONCHOPULMONARY DYSPLASIA
     Route: 055
     Dates: start: 20100901
  5. IPRAXA [Concomitant]
     Indication: BRONCHOPULMONARY DYSPLASIA
     Route: 055
     Dates: start: 20100901

REACTIONS (7)
  - MENTAL IMPAIRMENT [None]
  - GASTROENTERITIS VIRAL [None]
  - RESPIRATORY SYNCYTIAL VIRUS TEST POSITIVE [None]
  - HYPOPHAGIA [None]
  - PALLOR [None]
  - DIARRHOEA [None]
  - PRODUCTIVE COUGH [None]
